FAERS Safety Report 7564936-5 (Version None)
Quarter: 2011Q2

REPORT INFORMATION
  Report Type: 
  Country: None (occurrence: None)
  Receive Date: 20110622
  Receipt Date: 20110228
  Transmission Date: 20111010
  Serious: Yes (Death)
  Sender: FDA-Public Use
  Company Number: US-MYLANLABS-2011S1003902

PATIENT
  Age: 57 Year
  Sex: Male

DRUGS (10)
  1. ASPIRIN [Concomitant]
     Indication: PROPHYLAXIS
     Route: 048
  2. GLIPIZIDE [Concomitant]
     Indication: DIABETES MELLITUS
     Route: 048
  3. VITAMIN D [Concomitant]
     Indication: VITAMIN D DEFICIENCY
     Route: 048
  4. CALCITRIOL [Concomitant]
     Indication: PARATHYROID DISORDER
     Route: 048
  5. NORPRAMIN /00043102/ [Concomitant]
     Indication: DEPRESSION
     Route: 048
  6. FLORINEF [Concomitant]
     Indication: HYPOTENSION
     Route: 048
  7. FERROUS SULFATE TAB [Concomitant]
     Indication: ANAEMIA
     Route: 048
  8. PRAVASTATIN [Concomitant]
     Indication: BLOOD CHOLESTEROL INCREASED
     Route: 048
  9. LORAZEPAM [Concomitant]
     Indication: ANXIETY
     Route: 048
  10. CLOZAPINE [Suspect]
     Indication: SCHIZOPHRENIA
     Route: 048
     Dates: start: 20101208, end: 20110101

REACTIONS (1)
  - DEATH [None]
